FAERS Safety Report 8387665 (Version 4)
Quarter: 2014Q2

REPORT INFORMATION
  Report Type: Spontaneous
  Country: BR (occurrence: BR)
  Receive Date: 20120203
  Receipt Date: 20140516
  Transmission Date: 20141212
  Serious: Yes (Hospitalization, Other)
  Sender: FDA-Public Use
  Company Number: BR-AMGEN-BRASP2012005943

PATIENT
  Age: 54 Year
  Sex: Female
  Weight: 86 kg

DRUGS (16)
  1. ENBREL [Suspect]
     Indication: RHEUMATOID ARTHRITIS
     Dosage: 50 MG, QWK
     Route: 058
     Dates: start: 201010, end: 201305
  2. ENBREL [Suspect]
     Dosage: 50 MG, WEEKLY
     Route: 058
     Dates: start: 20110211, end: 201201
  3. ENBREL [Suspect]
     Dosage: UNK
     Route: 065
     Dates: start: 201110, end: 201110
  4. ENBREL [Suspect]
     Dosage: 50 MG, WEEKLY
     Route: 058
     Dates: start: 20120125
  5. ABLOK [Concomitant]
     Indication: HYPERTENSION
     Dosage: UNK
  6. CORUS [Concomitant]
     Indication: HYPERTENSION
     Dosage: UNK
  7. RIVOTRIL [Concomitant]
     Indication: ANXIOLYTIC THERAPY
     Dosage: UNK
     Dates: start: 2010
  8. RIVOTRIL [Concomitant]
     Indication: DEPRESSION
     Dosage: UNK
  9. SERTRALINE [Concomitant]
     Indication: SLEEP DISORDER THERAPY
     Dosage: UNK
  10. CARDIZEM                           /00489702/ [Concomitant]
     Indication: HYPERTENSION
     Dosage: UNK
     Dates: start: 201306
  11. HIGROTON [Concomitant]
     Indication: HYPERTENSION
     Dosage: UNK
     Dates: start: 201306
  12. FLUOXETINE [Concomitant]
     Indication: DEPRESSION
     Dosage: UNK
     Dates: start: 201306
  13. TRAVATAN [Concomitant]
     Indication: GLAUCOMA
     Dosage: UNK
     Dates: start: 201306
  14. LOTAR                              /02225901/ [Concomitant]
     Indication: BLOOD PRESSURE ABNORMAL
     Dosage: UNK
  15. PANTOPRAZOLE [Concomitant]
     Indication: GASTRIC DISORDER
     Dosage: STRENGTH 40 MG
  16. XALATAN [Concomitant]
     Indication: GLAUCOMA
     Dosage: UNK

REACTIONS (8)
  - Pulmonary mass [Unknown]
  - Fatigue [Unknown]
  - Secretion discharge [Unknown]
  - Asthma [Not Recovered/Not Resolved]
  - Rash macular [Unknown]
  - Discomfort [Unknown]
  - Thrombosis [Unknown]
  - Thrombosis [Unknown]
